FAERS Safety Report 9837255 (Version 1)
Quarter: 2013Q4

REPORT INFORMATION
  Report Type: Spontaneous
  Country: US (occurrence: None)
  Receive Date: 20131121
  Receipt Date: 20131121
  Transmission Date: 20140711
  Serious: No
  Sender: FDA-Public Use
  Company Number: 1000049531

PATIENT
  Sex: Female

DRUGS (2)
  1. TUDORZA PRESSAIR [Suspect]
  2. INHALERS NOS (INHALERS NOS) [Concomitant]

REACTIONS (3)
  - Laryngitis [None]
  - Cough [None]
  - Blood pressure increased [None]
